FAERS Safety Report 6089460-0 (Version None)
Quarter: 2009Q1

REPORT INFORMATION
  Report Type: 
  Country: None (occurrence: None)
  Receive Date: 20090224
  Receipt Date: 20090212
  Transmission Date: 20090719
  Serious: Yes (Other)
  Sender: FDA-Public Use
  Company Number: FR-PFIZER INC-2009172274

PATIENT

DRUGS (4)
  1. XANAX [Suspect]
     Dosage: UNK
  2. ZOLPIDEM TARTRATE [Concomitant]
     Dosage: UNK
  3. ALIMEMAZINE TARTRATE [Concomitant]
     Dosage: UNK
  4. AMITRIPTYLINE [Concomitant]
     Dosage: UNK

REACTIONS (2)
  - ANGIOEDEMA [None]
  - LIP OEDEMA [None]
